FAERS Safety Report 25379803 (Version 3)
Quarter: 2025Q2

REPORT INFORMATION
  Report Type: Spontaneous
  Country: US (occurrence: IR)
  Receive Date: 20250530
  Receipt Date: 20250617
  Transmission Date: 20250716
  Serious: No
  Sender: MERCK SHARP & DOHME LLC
  Company Number: US-009507513-2288631

PATIENT
  Sex: Female

DRUGS (1)
  1. KEYTRUDA [Suspect]
     Active Substance: PEMBROLIZUMAB
     Indication: Renal cell carcinoma

REACTIONS (1)
  - Suspected counterfeit product [Unknown]
